FAERS Safety Report 7312845-9 (Version None)
Quarter: 2011Q1

REPORT INFORMATION
  Report Type: 
  Country: None (occurrence: None)
  Receive Date: 20110224
  Receipt Date: 20110215
  Transmission Date: 20110831
  Serious: Yes (Hospitalization)
  Sender: FDA-Public Use
  Company Number: BR-WATSON-2010-16496

PATIENT
  Age: 27 Year
  Sex: Female

DRUGS (5)
  1. METOCLOPRAMIDE HYDROCHLORIDE [Suspect]
     Indication: PRODUCT USED FOR UNKNOWN INDICATION
     Dosage: UNK
  2. GABAPENTIN [Suspect]
     Indication: PRODUCT USED FOR UNKNOWN INDICATION
     Dosage: UNK
  3. AMITRIPTYLINE HCL [Suspect]
     Indication: PRODUCT USED FOR UNKNOWN INDICATION
  4. KETOPROFEN [Suspect]
     Indication: PRODUCT USED FOR UNKNOWN INDICATION
     Dosage: UNK
  5. ANTIBIOTICS [Suspect]
     Indication: PRODUCT USED FOR UNKNOWN INDICATION
     Dosage: UNK

REACTIONS (9)
  - HYPONATRAEMIA [None]
  - DRUG INEFFECTIVE [None]
  - CONVULSION [None]
  - HYPOKINESIA [None]
  - PAIN IN EXTREMITY [None]
  - PARAESTHESIA [None]
  - PORPHYRIA [None]
  - HEPATIC ENZYME INCREASED [None]
  - QUADRIPLEGIA [None]
